FAERS Safety Report 10962613 (Version 5)
Quarter: 2016Q3

REPORT INFORMATION
  Report Type: Spontaneous
  Country: US (occurrence: US)
  Receive Date: 20150327
  Receipt Date: 20160801
  Transmission Date: 20161109
  Serious: Yes (Hospitalization, Other)
  Sender: FDA-Public Use
  Company Number: US-009507513-1503USA012426

PATIENT
  Sex: Female
  Weight: 73.47 kg

DRUGS (4)
  1. FOSAMAX [Suspect]
     Active Substance: ALENDRONATE SODIUM
     Indication: OSTEOPOROSIS PROPHYLAXIS
  2. FOSAMAX PLUS D [Suspect]
     Active Substance: ALENDRONATE SODIUM\CHOLECALCIFEROL
     Indication: OSTEOPOROSIS PROPHYLAXIS
     Dosage: 70 MG, QW
     Route: 048
     Dates: start: 20080605, end: 20100126
  3. CENTRUM (MINERALS (UNSPECIFIED) (+) VITAMINS (UNSPECIFIED)) [Concomitant]
     Indication: ROUTINE HEALTH MAINTENANCE
     Dosage: 1 DF, QD
     Dates: start: 1990, end: 2014
  4. FOSAMAX [Suspect]
     Active Substance: ALENDRONATE SODIUM
     Indication: OSTEOPOROSIS
     Dosage: 70 MG, QW
     Route: 048
     Dates: end: 20080605

REACTIONS (14)
  - Femur fracture [Recovered/Resolved]
  - Intracranial aneurysm [Unknown]
  - Stent placement [Unknown]
  - Low turnover osteopathy [Unknown]
  - Tooth extraction [Unknown]
  - Anxiety [Not Recovered/Not Resolved]
  - Atypical femur fracture [Unknown]
  - Hypertension [Unknown]
  - Depression [Not Recovered/Not Resolved]
  - Hyperlipidaemia [Unknown]
  - Liver disorder [Not Recovered/Not Resolved]
  - Intramedullary rod insertion [Recovered/Resolved]
  - Transaminases increased [Unknown]
  - Gout [Unknown]

NARRATIVE: CASE EVENT DATE: 2000
